FAERS Safety Report 15757158 (Version 2)
Quarter: 2020Q3

REPORT INFORMATION
  Report Type: Spontaneous
  Country: ES (occurrence: ES)
  Receive Date: 20181224
  Receipt Date: 20200731
  Transmission Date: 20201102
  Serious: Yes (Life-Threatening)
  Sender: FDA-Public Use
  Company Number: ES-TEVA-2018-ES-989928

PATIENT
  Age: 46 Year
  Sex: Male

DRUGS (10)
  1. HIDROCLOROTIAZIDA (1343A) [Suspect]
     Active Substance: HYDROCHLOROTHIAZIDE
     Indication: HYPERTENSION
     Route: 048
     Dates: start: 20180725, end: 20180814
  2. BEMIPARINA SODICA (2817SO) [Concomitant]
     Indication: PROPHYLAXIS
     Route: 058
     Dates: start: 20180719, end: 20180731
  3. AMLODIPINO (2503A) [Suspect]
     Active Substance: AMLODIPINE BESYLATE
     Indication: HYPERTENSION
     Dosage: 10 MILLIGRAM DAILY;
     Route: 048
     Dates: start: 20180719, end: 20180814
  4. PARACETAMOL (12A) [Concomitant]
     Active Substance: ACETAMINOPHEN
     Indication: POSTOPERATIVE ANALGESIA
     Dosage: 1 GRAM DAILY;
     Route: 048
     Dates: start: 20180719, end: 20180831
  5. HIDRALAZINA HIDROCLORURO (1720CH) [Suspect]
     Active Substance: HYDRALAZINE HYDROCHLORIDE
     Indication: HYPERTENSION
     Route: 048
     Dates: start: 20180719, end: 20180814
  6. ACETILSALICILICO ACIDO (176A) [Suspect]
     Active Substance: ASPIRIN
     Indication: PROPHYLAXIS
     Route: 048
     Dates: start: 20180725, end: 20180814
  7. ENALAPRIL MALEATO (2142MA) [Suspect]
     Active Substance: ENALAPRIL MALEATE
     Indication: HYPERTENSION
     Route: 048
     Dates: start: 20180719, end: 20180814
  8. METAMIZOL (111A) [Concomitant]
     Active Substance: METAMIZOL SODIUM
     Indication: PAIN
     Route: 058
     Dates: start: 20180719, end: 20180721
  9. DOXAZOSINA (2387A) [Suspect]
     Active Substance: DOXAZOSIN MESYLATE
     Indication: HYPERTENSION
     Route: 048
     Dates: start: 20180719, end: 20180814
  10. AMOXICILINA + ACIDO CLAVULANICO [Suspect]
     Active Substance: AMOXICILLIN\CLAVULANIC ACID
     Indication: INFECTION
     Route: 048
     Dates: start: 20180719, end: 20180831

REACTIONS (1)
  - Toxic epidermal necrolysis [Recovered/Resolved]

NARRATIVE: CASE EVENT DATE: 20180814
